FAERS Safety Report 10345689 (Version 3)
Quarter: 2015Q4

REPORT INFORMATION
  Report Type: Spontaneous
  Country: US (occurrence: US)
  Receive Date: 20140728
  Receipt Date: 20151006
  Transmission Date: 20160304
  Serious: Yes (Hospitalization, Congenital Anomaly, Other)
  Sender: FDA-Public Use
  Company Number: US-ELI_LILLY_AND_COMPANY-US201407006561

PATIENT
  Age: 5 Day
  Sex: Female

DRUGS (3)
  1. OXYCODONE [Concomitant]
     Active Substance: OXYCODONE
     Route: 064
  2. TYLENOL [Concomitant]
     Active Substance: ACETAMINOPHEN
     Route: 064
  3. PROZAC [Suspect]
     Active Substance: FLUOXETINE HYDROCHLORIDE
     Indication: PRODUCT USED FOR UNKNOWN INDICATION
     Dosage: 1 DF, UNKNOWN
     Route: 064

REACTIONS (19)
  - Seizure [Unknown]
  - Cough [Unknown]
  - Fall [Unknown]
  - Eyelid haemangioma [Unknown]
  - Head injury [Unknown]
  - Nasal congestion [Unknown]
  - Limb malformation [Unknown]
  - Pyrexia [Unknown]
  - Enterococcal bacteraemia [Unknown]
  - Rash [Unknown]
  - Respiratory distress [Unknown]
  - Balance disorder [Unknown]
  - Foetal exposure during pregnancy [Recovered/Resolved]
  - Dermatitis diaper [Unknown]
  - Skin warm [Unknown]
  - Neonatal respiratory distress syndrome [Recovered/Resolved]
  - Diarrhoea [Unknown]
  - Decreased appetite [Unknown]
  - Hypersomnia [Unknown]

NARRATIVE: CASE EVENT DATE: 20110611
